FAERS Safety Report 5412846-1 (Version None)
Quarter: 2007Q3

REPORT INFORMATION
  Report Type: 
  Country: None (occurrence: None)
  Receive Date: 20070813
  Receipt Date: 20070809
  Transmission Date: 20080115
  Serious: Yes (Hospitalization)
  Sender: FDA-Public Use
  Company Number: IN-GILEAD-2006-0010596

PATIENT
  Age: 53 Year
  Sex: Female
  Weight: 57.4 kg

DRUGS (7)
  1. EMTRICITABINE [Suspect]
     Indication: HIV INFECTION
     Route: 048
     Dates: start: 20060601
  2. TENOFOVIR DISOPROXIL FUMARATE [Suspect]
     Indication: HIV INFECTION
     Route: 048
     Dates: start: 20060601
  3. EFAVIRENZ [Concomitant]
     Indication: HIV INFECTION
     Route: 048
     Dates: start: 20060601
  4. ENALAPRIL MALEATE [Concomitant]
  5. GLIPIZIDE [Concomitant]
  6. MULTIVITAMIN [Concomitant]
  7. IRON [Concomitant]

REACTIONS (1)
  - PARAPLEGIA [None]
